FAERS Safety Report 15934410 (Version 4)
Quarter: 2019Q2

REPORT INFORMATION
  Report Type: Spontaneous
  Country: US (occurrence: US)
  Receive Date: 20190207
  Receipt Date: 20190523
  Transmission Date: 20190711
  Serious: Yes (Other)
  Sender: FDA-Public Use
  Company Number: US-ASTRAZENECA-2018SF13870

PATIENT
  Age: 20213 Day
  Sex: Male

DRUGS (54)
  1. AMOXICILLIN. [Concomitant]
     Active Substance: AMOXICILLIN
     Dosage: TAKE 1 CAPSULE 2 TIMES A DAY
     Dates: start: 20000121
  2. HYDROCHLOROTHIAZIDE. [Concomitant]
     Active Substance: HYDROCHLOROTHIAZIDE
     Dosage: BY MOUTH EVERY MORNING
     Route: 048
     Dates: start: 20091203
  3. TRAZODONE [Concomitant]
     Active Substance: TRAZODONE HYDROCHLORIDE
  4. WELLBUTRIN [Concomitant]
     Active Substance: BUPROPION HYDROCHLORIDE
  5. SERTRALINE [Concomitant]
     Active Substance: SERTRALINE HYDROCHLORIDE
  6. SIMETHICONE (DIMETHICONE) [Concomitant]
     Active Substance: DIMETHICONE
  7. DORZOLAMIDE [Concomitant]
     Active Substance: DORZOLAMIDE
  8. PRILOSEC OTC [Suspect]
     Active Substance: OMEPRAZOLE MAGNESIUM
     Route: 048
     Dates: start: 20030620, end: 20171231
  9. METRONIDAZOLE. [Concomitant]
     Active Substance: METRONIDAZOLE
     Dosage: TAKE I TABLET TWO TIMES A DAY
     Dates: start: 20000421
  10. ACYCLOVIR. [Concomitant]
     Active Substance: ACYCLOVIR
     Dosage: BY MOUTH TWICE A DAY
     Route: 048
     Dates: start: 20091203
  11. LISINOPRIL. [Concomitant]
     Active Substance: LISINOPRIL
  12. LEVAQUIN [Concomitant]
     Active Substance: LEVOFLOXACIN
  13. ALBUTEROL. [Concomitant]
     Active Substance: ALBUTEROL
  14. SILDENAFIL. [Concomitant]
     Active Substance: SILDENAFIL
  15. ZOLOFT [Concomitant]
     Active Substance: SERTRALINE HYDROCHLORIDE
  16. LISINOPRIL. [Concomitant]
     Active Substance: LISINOPRIL
  17. LATANOPROST. [Concomitant]
     Active Substance: LATANOPROST
  18. SUCRALFATE. [Concomitant]
     Active Substance: SUCRALFATE
  19. AMLODIPINE BESYLATE. [Concomitant]
     Active Substance: AMLODIPINE BESYLATE
  20. ZOLPIDEM [Concomitant]
     Active Substance: ZOLPIDEM\ZOLPIDEM TARTRATE
  21. PRILOSEC OTC [Suspect]
     Active Substance: OMEPRAZOLE MAGNESIUM
     Route: 048
     Dates: start: 20030620, end: 20100331
  22. PREVACID [Suspect]
     Active Substance: LANSOPRAZOLE
     Indication: GASTROOESOPHAGEAL REFLUX DISEASE
     Dosage: TAKE 1 TABLET IN THE MORNING
     Route: 065
     Dates: start: 20000210
  23. NORVASC [Concomitant]
     Active Substance: AMLODIPINE BESYLATE
     Dosage: TILKE L TABLET IN THE MORNING
     Dates: start: 20000421
  24. MIRTAZAPINE. [Concomitant]
     Active Substance: MIRTAZAPINE
  25. RANITIDINE. [Concomitant]
     Active Substance: RANITIDINE
  26. TAMSULOSIN [Concomitant]
     Active Substance: TAMSULOSIN
  27. AMOXICILLIN. [Concomitant]
     Active Substance: AMOXICILLIN
  28. MICONAZOLE. [Concomitant]
     Active Substance: MICONAZOLE
  29. LIDOCAINE. [Concomitant]
     Active Substance: LIDOCAINE
  30. PERCOCET [Concomitant]
     Active Substance: ACETAMINOPHEN\OXYCODONE HYDROCHLORIDE
  31. ELAVIL [Concomitant]
     Active Substance: AMITRIPTYLINE HYDROCHLORIDE
  32. CEFUROXIME. [Concomitant]
     Active Substance: CEFUROXIME
  33. METOCLOPRAMIDE. [Concomitant]
     Active Substance: METOCLOPRAMIDE
  34. METRONIDAZOLE. [Concomitant]
     Active Substance: METRONIDAZOLE
  35. BRIMONIDINE [Concomitant]
     Active Substance: BRIMONIDINE TARTRATE
  36. OXYCODONE/ACETAMINOPHEN [Concomitant]
     Active Substance: ACETAMINOPHEN\OXYCODONE HYDROCHLORIDE
  37. PRAVASTATIN. [Concomitant]
     Active Substance: PRAVASTATIN
  38. PRILOSEC OTC [Suspect]
     Active Substance: OMEPRAZOLE MAGNESIUM
     Route: 048
     Dates: start: 200002, end: 201003
  39. PREVACID [Suspect]
     Active Substance: LANSOPRAZOLE
     Indication: GASTROOESOPHAGEAL REFLUX DISEASE
     Route: 065
     Dates: start: 20000210, end: 20001006
  40. PREVACID [Suspect]
     Active Substance: LANSOPRAZOLE
     Indication: GASTROOESOPHAGEAL REFLUX DISEASE
     Route: 065
     Dates: start: 20000201, end: 20100331
  41. PROTONIX [Suspect]
     Active Substance: PANTOPRAZOLE SODIUM
     Indication: GASTROOESOPHAGEAL REFLUX DISEASE
     Route: 065
     Dates: start: 20000202, end: 20100331
  42. PROTONIX [Suspect]
     Active Substance: PANTOPRAZOLE SODIUM
     Indication: GASTROOESOPHAGEAL REFLUX DISEASE
     Dosage: PANTOPRAZOLE-BY MOUTH EVERY DAY
     Route: 065
     Dates: start: 20091203
  43. ZANTAC [Concomitant]
     Active Substance: RANITIDINE HYDROCHLORIDE
     Dosage: TAKE 1 TABLET AT BEDTIME
     Dates: start: 20000210
  44. METOCLOPRAMIDE. [Concomitant]
     Active Substance: METOCLOPRAMIDE
     Dosage: TAKE 1 TABLET 3 TIMES A DAY
     Dates: start: 20000229
  45. TRAMADOL HYDROCHLORIDE. [Concomitant]
     Active Substance: TRAMADOL HYDROCHLORIDE
     Indication: PAIN
     Dosage: TAKE 1 TABLET BY MOUTH THREE TIMES A DAY AS NEEDED
     Route: 048
     Dates: start: 20100316
  46. FINASTERIDE. [Concomitant]
     Active Substance: FINASTERIDE
  47. GABAPENTIN. [Concomitant]
     Active Substance: GABAPENTIN
  48. ASPIRIN. [Concomitant]
     Active Substance: ASPIRIN
  49. OMEPRAZOLE. [Suspect]
     Active Substance: OMEPRAZOLE
     Indication: GASTROOESOPHAGEAL REFLUX DISEASE
     Route: 065
     Dates: start: 20160106, end: 20170407
  50. PROTONIX [Suspect]
     Active Substance: PANTOPRAZOLE SODIUM
     Indication: GASTROOESOPHAGEAL REFLUX DISEASE
     Route: 065
     Dates: start: 20091203, end: 20100316
  51. DICYCLOMINE [Concomitant]
     Active Substance: DICYCLOMINE HYDROCHLORIDE
  52. CITALOPRAM [Concomitant]
     Active Substance: CITALOPRAM HYDROBROMIDE
  53. MORPHINE [Concomitant]
     Active Substance: MORPHINE
  54. HYDROCHLOROTHIAZIDE. [Concomitant]
     Active Substance: HYDROCHLOROTHIAZIDE

REACTIONS (4)
  - Chronic kidney disease [Not Recovered/Not Resolved]
  - Renal injury [Unknown]
  - Renal failure [Unknown]
  - Nephrogenic anaemia [Unknown]

NARRATIVE: CASE EVENT DATE: 20100326
